FAERS Safety Report 18809035 (Version 1)
Quarter: 2021Q1

REPORT INFORMATION
  Report Type: Spontaneous
  Country: JP (occurrence: JP)
  Receive Date: 20210129
  Receipt Date: 20210129
  Transmission Date: 20210419
  Serious: Yes (Other)
  Sender: FDA-Public Use
  Company Number: JP-ASPEN-GLO2021JP000440

PATIENT

DRUGS (5)
  1. ETOPOSIDE. [Suspect]
     Active Substance: ETOPOSIDE
     Indication: ANAPLASTIC LARGE-CELL LYMPHOMA
     Route: 065
  2. VINBLASTINE [Suspect]
     Active Substance: VINBLASTINE
     Indication: ANAPLASTIC LARGE-CELL LYMPHOMA
     Route: 065
  3. DEXAMETHASONE. [Suspect]
     Active Substance: DEXAMETHASONE
     Indication: ANAPLASTIC LARGE-CELL LYMPHOMA
     Route: 065
  4. CYCLOPHOSPHAMIDE DCI [Suspect]
     Active Substance: CYCLOPHOSPHAMIDE
     Indication: ANAPLASTIC LARGE-CELL LYMPHOMA
     Route: 065
  5. ADRIACIN [Suspect]
     Active Substance: DOXORUBICIN HYDROCHLORIDE
     Indication: ANAPLASTIC LARGE-CELL LYMPHOMA
     Route: 065

REACTIONS (5)
  - Candida infection [Unknown]
  - Vascular pseudoaneurysm ruptured [Recovered/Resolved]
  - Vascular pseudoaneurysm [Unknown]
  - Shock haemorrhagic [Unknown]
  - Pyrexia [Recovering/Resolving]
